FAERS Safety Report 9462815 (Version 2)
Quarter: 2013Q3

REPORT INFORMATION
  Report Type: Spontaneous
  Country: US (occurrence: US)
  Receive Date: 20130816
  Receipt Date: 20130829
  Transmission Date: 20140515
  Serious: No
  Sender: FDA-Public Use
  Company Number: US-009507513-1308USA007537

PATIENT
  Sex: Male
  Weight: 79.37 kg

DRUGS (6)
  1. MIRALAX [Suspect]
     Indication: CONSTIPATION PROPHYLAXIS
     Dosage: 17 G, QD
     Route: 048
     Dates: start: 2008
  2. MIRALAX [Suspect]
     Indication: MEDICAL OBSERVATION
  3. PLAVIX [Concomitant]
     Indication: CARDIAC DISORDER
     Dosage: UNK, UNKNOWN
  4. LIPITOR [Concomitant]
     Indication: BLOOD CHOLESTEROL ABNORMAL
     Dosage: UNK, UNKNOWN
  5. PAXIL [Concomitant]
     Indication: ANXIETY
     Dosage: UNK, UNKNOWN
  6. SINEMET [Concomitant]
     Indication: PARKINSON^S DISEASE
     Dosage: UNK, UNKNOWN

REACTIONS (2)
  - Incorrect drug administration duration [Unknown]
  - Product contamination physical [Unknown]
